FAERS Safety Report 22084745 (Version 1)
Quarter: 2023Q1

REPORT INFORMATION
  Report Type: Spontaneous
  Country: US (occurrence: None)
  Receive Date: 20230310
  Receipt Date: 20230310
  Transmission Date: 20230418
  Serious: Yes (Other)
  Sender: FDA-Public Use
  Company Number: None

PATIENT
  Age: 13 Year
  Sex: Male
  Weight: 87 kg

DRUGS (1)
  1. HEMLIBRA [Suspect]
     Active Substance: EMICIZUMAB-KXWH
     Indication: Factor VIII deficiency
     Dosage: OTHER FREQUENCY : WEEKLLY;?
     Route: 058
     Dates: start: 20230214, end: 20230308

REACTIONS (4)
  - Pruritus [None]
  - Burning sensation [None]
  - Musculoskeletal chest pain [None]
  - Pericardial effusion [None]

NARRATIVE: CASE EVENT DATE: 20230308
